FAERS Safety Report 9784747 (Version 2)
Quarter: 2014Q3

REPORT INFORMATION
  Report Type: Spontaneous
  Country: CA (occurrence: CA)
  Receive Date: 20131227
  Receipt Date: 20140912
  Transmission Date: 20150326
  Serious: Yes (Disabling)
  Sender: FDA-Public Use
  Company Number: CA-ALVOGEN-2013AL002891

PATIENT
  Age: 30 Year
  Sex: Female
  Weight: 86 kg

DRUGS (7)
  1. AMITRIPTYLINE [Concomitant]
     Active Substance: AMITRIPTYLINE
     Indication: FIBROMYALGIA
  2. MACROBID [Suspect]
     Active Substance: NITROFURANTOIN\NITROFURANTOIN MONOHYDRATE
     Indication: URINARY TRACT INFECTION
     Dates: start: 2012, end: 201308
  3. TRI-CYCLEN [Concomitant]
     Indication: ORAL CONTRACEPTION
  4. CORTISONE [Concomitant]
     Active Substance: CORTISONE\HYDROCORTISONE
     Indication: VULVOVAGINAL BURNING SENSATION
  5. SIMBICORT TURBUHALER [Concomitant]
     Indication: PRODUCT USED FOR UNKNOWN INDICATION
  6. MACROBID [Suspect]
     Active Substance: NITROFURANTOIN\NITROFURANTOIN MONOHYDRATE
     Indication: URINARY TRACT INFECTION
     Route: 048
     Dates: start: 20131211, end: 201312
  7. MACROBID [Suspect]
     Active Substance: NITROFURANTOIN\NITROFURANTOIN MONOHYDRATE
     Indication: URINARY TRACT INFECTION
     Dates: start: 201205, end: 2012

REACTIONS (7)
  - Fungal infection [Unknown]
  - Vulvovaginal pain [Recovered/Resolved with Sequelae]
  - Neuralgia [Recovered/Resolved with Sequelae]
  - Asthma [Recovered/Resolved with Sequelae]
  - Fibromyalgia [Not Recovered/Not Resolved]
  - Nerve injury [Not Recovered/Not Resolved]
  - Alopecia [None]

NARRATIVE: CASE EVENT DATE: 201205
